FAERS Safety Report 14803112 (Version 1)
Quarter: 2018Q2

REPORT INFORMATION
  Report Type: Spontaneous
  Country: NL (occurrence: NL)
  Receive Date: 20180425
  Receipt Date: 20180425
  Transmission Date: 20180711
  Serious: Yes (Hospitalization)
  Sender: FDA-Public Use
  Company Number: NL-TEVA-2018-NL-885275

PATIENT
  Age: 68 Year
  Sex: Female

DRUGS (7)
  1. FRAGMIN [Concomitant]
     Active Substance: DALTEPARIN SODIUM
     Dosage: .2 ML DAILY; 1 DD 0.2 ML , 5000 INJVLST
     Dates: start: 20160704
  2. BISOPROLOL FUMARAAT MYLAN TABLET 5 MG [Concomitant]
     Dosage: 5 MILLIGRAM DAILY;
     Dates: start: 20160108
  3. RESCUVOLIN TABLET 15 MG [Concomitant]
     Dosage: 1 X PER WEEK 0.5 TABLET
     Dates: start: 20141014
  4. MELOXICAM TABLET 15MG TABLET, 15 MG (MILLIGRAM) [Interacting]
     Active Substance: MELOXICAM
     Indication: RHEUMATIC DISORDER
     Dosage: 15 MILLIGRAM DAILY; 1 X DAILY1 TABLET
     Dates: start: 20180116, end: 20180119
  5. OMEPRAZOL AURO CAPSULE MSR 20 MG [Concomitant]
     Dosage: 20 MILLIGRAM DAILY; 1 DD 1
     Dates: start: 20110530
  6. METHOTREXAAT PCH TABLET 2.5 MG [Suspect]
     Active Substance: METHOTREXATE
     Dosage: 1 X PER WEEK 6 TABLETTEN
     Dates: start: 20111019
  7. OCUVITE LUTEIN TABLET [Concomitant]
     Dates: start: 20170324

REACTIONS (2)
  - Nephritis [Recovered/Resolved]
  - Drug interaction [Recovered/Resolved]

NARRATIVE: CASE EVENT DATE: 20180117
